FAERS Safety Report 5000546-1 (Version None)
Quarter: 2006Q2

REPORT INFORMATION
  Report Type: 
  Country: None (occurrence: None)
  Receive Date: 20060512
  Receipt Date: 20050912
  Transmission Date: 20061013
  Serious: No
  Sender: FDA-Public Use
  Company Number: US-BRISTOL-MYERS SQUIBB COMPANY-13106935

PATIENT
  Age: 64 Year
  Sex: Female
  Weight: 66 kg

DRUGS (6)
  1. CYTOXAN [Suspect]
     Indication: PERITONEAL CARCINOMA
     Route: 042
     Dates: start: 20050906, end: 20050906
  2. LORAZEPAM [Concomitant]
  3. TEMAZEPAM [Concomitant]
  4. ZOFRAN [Concomitant]
     Indication: PREMEDICATION
     Route: 048
  5. ATIVAN [Concomitant]
     Indication: PREMEDICATION
     Route: 048
  6. BENADRYL [Concomitant]
     Indication: PREMEDICATION
     Route: 042

REACTIONS (3)
  - ABDOMINAL DISTENSION [None]
  - CONSTIPATION [None]
  - NAUSEA [None]
